FAERS Safety Report 4471841-X (Version None)
Quarter: 2004Q4

REPORT INFORMATION
  Report Type: 
  Country: None (occurrence: None)
  Receive Date: 20041006
  Receipt Date: 20040923
  Transmission Date: 20050328
  Serious: Yes (Life-Threatening, Other)
  Sender: FDA-Public Use
  Company Number: 2004070758

PATIENT
  Age: 88 Year
  Sex: Female

DRUGS (1)
  1. DIFLUCAN [Suspect]
     Indication: FUNGAL INFECTION
     Dosage: (2 MG/ML), INTRAVENOUS
     Route: 042
     Dates: start: 20040914

REACTIONS (2)
  - DYSPNOEA [None]
  - MALAISE [None]
